FAERS Safety Report 8412645-2 (Version None)
Quarter: 2012Q2

REPORT INFORMATION
  Report Type: 
  Country: None (occurrence: None)
  Receive Date: 20120605
  Receipt Date: 20120524
  Transmission Date: 20120825
  Serious: No
  Sender: FDA-Public Use
  Company Number: US-B.I. PHARMACEUTICALS,INC./RIDGEFIELD-2012-BP-12402BP

PATIENT
  Sex: Male

DRUGS (3)
  1. KLONOPIN [Concomitant]
     Indication: ANXIETY
     Route: 048
     Dates: start: 20110901
  2. AMLODIPINE [Concomitant]
     Indication: HYPERTENSION
     Dosage: 10 MG
     Route: 048
     Dates: start: 20100101
  3. ZANTAC 150 [Suspect]
     Indication: DYSPEPSIA
     Dosage: 150 MG
     Route: 048
     Dates: start: 20120523, end: 20120523

REACTIONS (1)
  - FAECES DISCOLOURED [None]
